FAERS Safety Report 10974092 (Version 1)
Quarter: 2015Q1

REPORT INFORMATION
  Report Type: Spontaneous
  Country: US (occurrence: None)
  Receive Date: 20150226
  Receipt Date: 20150226
  Transmission Date: 20150721
  Serious: No
  Sender: FDA-Public Use
  Company Number: TPA2009A00958

PATIENT
  Age: 45 Year
  Sex: Male

DRUGS (4)
  1. PERCOCET [Concomitant]
     Active Substance: ACETAMINOPHEN\OXYCODONE HYDROCHLORIDE
  2. ULORIC [Suspect]
     Active Substance: FEBUXOSTAT
     Indication: GOUT
     Route: 048
     Dates: start: 20090317
  3. IBUPROFEN. [Concomitant]
     Active Substance: IBUPROFEN
  4. SOLUMED [Concomitant]

REACTIONS (1)
  - Gout [None]

NARRATIVE: CASE EVENT DATE: 20090317
